FAERS Safety Report 9261696 (Version 1)
Quarter: 2013Q2

REPORT INFORMATION
  Report Type: Spontaneous
  Country: FR (occurrence: FR)
  Receive Date: 20130429
  Receipt Date: 20130429
  Transmission Date: 20140414
  Serious: Yes (Hospitalization, Other)
  Sender: FDA-Public Use
  Company Number: FR-PFIZER INC-2013126266

PATIENT
  Age: 67 Year
  Sex: Female

DRUGS (4)
  1. ADRIBLASTINE [Suspect]
     Indication: B-CELL LYMPHOMA
     Dosage: UNK
     Route: 041
     Dates: start: 20091210, end: 20100517
  2. ENDOXAN [Suspect]
     Indication: B-CELL LYMPHOMA
     Dosage: UNK
     Route: 041
     Dates: start: 20091210, end: 20100517
  3. MABTHERA [Suspect]
     Indication: B-CELL LYMPHOMA
     Dosage: UNK
     Route: 041
     Dates: start: 20091210, end: 20100517
  4. ONCOVIN [Suspect]
     Indication: B-CELL LYMPHOMA
     Dosage: UNK
     Route: 041
     Dates: start: 20091210, end: 20100517

REACTIONS (5)
  - Acute myeloid leukaemia [Not Recovered/Not Resolved]
  - Second primary malignancy [Not Recovered/Not Resolved]
  - Pancytopenia [Unknown]
  - Dyspnoea [Unknown]
  - Pyrexia [Unknown]
